FAERS Safety Report 26203176 (Version 1)
Quarter: 2025Q4

REPORT INFORMATION
  Report Type: Spontaneous
  Country: EU (occurrence: EU)
  Receive Date: 20251226
  Receipt Date: 20251226
  Transmission Date: 20260117
  Serious: Yes (Other)
  Sender: CELLTRION
  Company Number: EU-002147023-NVSC2025HR188800

PATIENT

DRUGS (16)
  1. OMALIZUMAB [Suspect]
     Active Substance: OMALIZUMAB
     Indication: Chronic spontaneous urticaria
     Dosage: 150 MG, QMO (4 APPLICATIONS IN TOTAL)
     Route: 058
     Dates: start: 20200810, end: 20201228
  2. OMALIZUMAB [Suspect]
     Active Substance: OMALIZUMAB
     Dosage: 150 MG, (5TH DOSE)
     Route: 058
     Dates: start: 202107
  3. OMALIZUMAB [Suspect]
     Active Substance: OMALIZUMAB
     Dosage: 150 MG, (6TH DOSE)
     Route: 058
     Dates: start: 20211111
  4. OMALIZUMAB [Suspect]
     Active Substance: OMALIZUMAB
     Dosage: 150 MG, (7TH DOSE)
     Route: 058
     Dates: start: 20211209
  5. OMALIZUMAB [Suspect]
     Active Substance: OMALIZUMAB
     Dosage: 150 MG, (8TH DOSE)
     Route: 058
     Dates: start: 20220110
  6. FEXOFENADINE [Concomitant]
     Active Substance: FEXOFENADINE HYDROCHLORIDE
     Indication: Product used for unknown indication
     Dosage: 180 MILLIGRAM, QD (1 TBL)
     Route: 065
  7. AMLODIPINE [Concomitant]
     Active Substance: AMLODIPINE BESYLATE
     Indication: Product used for unknown indication
     Dosage: 5 MILLIGRAM, QD (0,0,1)
     Route: 065
  8. BISOPROLOL [Concomitant]
     Active Substance: BISOPROLOL
     Indication: Product used for unknown indication
     Dosage: 2.5 UNK, BID (1,0,1)
     Route: 065
  9. ROSUVASTATIN [Concomitant]
     Active Substance: ROSUVASTATIN
     Indication: Product used for unknown indication
     Dosage: 20 MG, QD (0,0,1)
     Route: 065
  10. METFORMIN [Concomitant]
     Active Substance: METFORMIN HYDROCHLORIDE
     Indication: Product used for unknown indication
     Dosage: 1000 MILLIGRAM, QD (0,0,1)
     Route: 065
  11. FOLIC ACID [Concomitant]
     Active Substance: FOLIC ACID
     Indication: Product used for unknown indication
     Dosage: 5 MILLIGRAM, BID (1,0,1)
     Route: 065
  12. LAMOTRIGINE [Concomitant]
     Active Substance: LAMOTRIGINE
     Indication: Product used for unknown indication
     Dosage: 50 MG, BID (1,0,1)
     Route: 065
  13. VITAMIN B12 [Concomitant]
     Active Substance: CYANOCOBALAMIN
     Indication: Product used for unknown indication
     Dosage: 1000 IU, QW (1XWEEKLY)
     Route: 030
     Dates: start: 202111
  14. CHOLECALCIFEROL [Concomitant]
     Active Substance: CHOLECALCIFEROL
     Indication: Product used for unknown indication
     Dosage: 25000, (1 AMP 2XMONTHLY)
     Route: 065
  15. CHLOROPYRAMINE HYDROCHLORIDE [Concomitant]
     Active Substance: CHLOROPYRAMINE HYDROCHLORIDE
     Indication: Product used for unknown indication
     Dosage: UNK
     Route: 065
  16. MEDROL [Concomitant]
     Active Substance: METHYLPREDNISOLONE
     Indication: Product used for unknown indication
     Dosage: UNK
     Route: 065

REACTIONS (7)
  - Choking [Unknown]
  - Condition aggravated [Unknown]
  - Mouth swelling [Unknown]
  - Urticaria [Unknown]
  - Eye swelling [Unknown]
  - Peripheral swelling [Unknown]
  - Off label use [Unknown]
